FAERS Safety Report 13745793 (Version 3)
Quarter: 2017Q3

REPORT INFORMATION
  Report Type: Spontaneous
  Country: US (occurrence: US)
  Receive Date: 20170712
  Receipt Date: 20170728
  Transmission Date: 20171127
  Serious: Yes (Disabling)
  Sender: FDA-Public Use
  Company Number: US-CELGENEUS-USA-20170610390

PATIENT
  Age: 70 Year
  Sex: Female

DRUGS (5)
  1. OTEZLA [Suspect]
     Active Substance: APREMILAST
     Indication: PSORIASIS
     Dosage: 60 MILLIGRAM
     Route: 048
     Dates: start: 20170228
  2. DERMASMOOTHE BODY OIL [Concomitant]
     Indication: PSORIASIS
     Dosage: .01 PERCENT
     Route: 065
     Dates: start: 20160310
  3. TRIAMCINOLONE ACETONIDE. [Concomitant]
     Active Substance: TRIAMCINOLONE ACETONIDE
     Indication: PRODUCT USED FOR UNKNOWN INDICATION
     Dosage: .1 PERCENT
     Route: 061
     Dates: start: 2017
  4. OTEZLA [Suspect]
     Active Substance: APREMILAST
     Dosage: 30 MILLIGRAM
     Route: 048
     Dates: start: 20170410, end: 20170510
  5. CLOBETASOL [Concomitant]
     Active Substance: CLOBETASOL
     Indication: PSORIASIS
     Dosage: .05 PERCENT
     Route: 061
     Dates: start: 20170228

REACTIONS (4)
  - Wrong technique in product usage process [Recovered/Resolved]
  - Pain in jaw [Recovered/Resolved]
  - Headache [Recovered/Resolved]
  - Psoriasis [Unknown]

NARRATIVE: CASE EVENT DATE: 2017
